FAERS Safety Report 16960790 (Version 1)
Quarter: 2019Q4

REPORT INFORMATION
  Report Type: Spontaneous
  Country: FR (occurrence: FR)
  Receive Date: 20191025
  Receipt Date: 20191025
  Transmission Date: 20200122
  Serious: Yes (Other)
  Sender: FDA-Public Use
  Company Number: FR-ACCORD-159032

PATIENT
  Age: 65 Year
  Sex: Female
  Weight: 49 kg

DRUGS (1)
  1. IRINOTECAN ACCORD [Suspect]
     Active Substance: IRINOTECAN
     Indication: PANCREATIC CARCINOMA
     Route: 041
     Dates: start: 20190919

REACTIONS (2)
  - Infusion related reaction [Recovered/Resolved]
  - Off label use [Unknown]

NARRATIVE: CASE EVENT DATE: 20190919
